FAERS Safety Report 4501522-5 (Version None)
Quarter: 2004Q4

REPORT INFORMATION
  Report Type: 
  Country: None (occurrence: None)
  Receive Date: 20041109
  Receipt Date: 20041025
  Transmission Date: 20050328
  Serious: Yes (Hospitalization)
  Sender: FDA-Public Use
  Company Number: 2004AC00672

PATIENT
  Age: 28 Year
  Sex: Male

DRUGS (1)
  1. ZOMIG [Suspect]
     Indication: HEADACHE

REACTIONS (11)
  - APHASIA [None]
  - CAROTID ARTERY DISSECTION [None]
  - CAROTID ARTERY OCCLUSION [None]
  - CEREBRAL ARTERY OCCLUSION [None]
  - CEREBRAL INFARCTION [None]
  - FALL [None]
  - HEMIPLEGIA [None]
  - THROMBOSIS [None]
  - TRANSIENT ISCHAEMIC ATTACK [None]
  - VASCULAR PSEUDOANEURYSM [None]
  - VASOSPASM [None]
